FAERS Safety Report 22059132 (Version 1)
Quarter: 2023Q1

REPORT INFORMATION
  Report Type: Spontaneous
  Country: CN (occurrence: CN)
  Receive Date: 20230303
  Receipt Date: 20230303
  Transmission Date: 20230417
  Serious: Yes (Other)
  Sender: FDA-Public Use
  Company Number: CN-ELI_LILLY_AND_COMPANY-CN202302009865

PATIENT
  Age: 25 Year
  Sex: Female
  Weight: 50 kg

DRUGS (2)
  1. PROZAC [Suspect]
     Active Substance: FLUOXETINE HYDROCHLORIDE
     Indication: Affective disorder
     Dosage: 30 MG, DAILY
     Route: 048
     Dates: start: 20230112, end: 20230115
  2. QUETIAPINE FUMARATE [Suspect]
     Active Substance: QUETIAPINE FUMARATE
     Indication: Affective disorder
     Dosage: 300 MG, DAILY
     Route: 048
     Dates: start: 20230112, end: 20230115

REACTIONS (2)
  - Rash erythematous [Recovering/Resolving]
  - Rash pruritic [Recovering/Resolving]

NARRATIVE: CASE EVENT DATE: 20230115
